FAERS Safety Report 7820017-4 (Version None)
Quarter: 2011Q4

REPORT INFORMATION
  Report Type: 
  Country: None (occurrence: None)
  Receive Date: 20111018
  Receipt Date: 20111007
  Transmission Date: 20120403
  Serious: Yes (Other)
  Sender: FDA-Public Use
  Company Number: PHHY2011JP78149

PATIENT
  Sex: Male

DRUGS (3)
  1. LEXIN [Concomitant]
     Dosage: 400 MG, UNK
     Route: 048
     Dates: start: 20110712
  2. AFINITOR [Suspect]
     Indication: METASTATIC RENAL CELL CARCINOMA
     Dosage: 5 MG, DAILY
     Route: 048
     Dates: start: 20110720, end: 20110802
  3. AFINITOR [Suspect]
     Dosage: 10 MG, DAILY
     Route: 048
     Dates: start: 20110803

REACTIONS (1)
  - GAMMA-GLUTAMYLTRANSFERASE INCREASED [None]
